FAERS Safety Report 8120122 (Version 2)
Quarter: 2013Q1

REPORT INFORMATION
  Report Type: Report from Study
  Country: BE (occurrence: BE)
  Receive Date: 20110905
  Receipt Date: 20130318
  Transmission Date: 20140127
  Serious: Yes (Hospitalization)
  Sender: FDA-Public Use
  Company Number: PHHO2011BE14677

PATIENT
  Age: 55 Year
  Sex: Male
  Weight: 131 kg

DRUGS (10)
  1. NO TREATMENT RECEIVED [Suspect]
     Indication: RENAL TRANSPLANT
  2. MYFORTIC [Suspect]
     Indication: RENAL TRANSPLANT
     Dosage: 1440 MG, UNK
     Route: 048
     Dates: start: 20100323, end: 20100527
  3. MYFORTIC [Suspect]
     Dosage: 720 MG, UNK
     Route: 048
     Dates: start: 20100602
  4. NEORAL [Suspect]
     Indication: RENAL TRANSPLANT
     Dosage: 50 MG, BID
     Route: 048
     Dates: start: 20100324
  5. NEORAL [Suspect]
     Dosage: 225 MG, UNK
     Route: 048
     Dates: start: 20100422, end: 20100428
  6. NEORAL [Suspect]
     Dosage: 175 MG, UNK
     Route: 048
     Dates: start: 20100628, end: 20100901
  7. MEDROL [Suspect]
     Indication: RENAL TRANSPLANT
     Dosage: 8 MG, QD
     Route: 048
     Dates: start: 20100422, end: 20100428
  8. MEDROL [Suspect]
     Dosage: 4 MG, UNK
     Route: 048
     Dates: start: 20100510
  9. BUMETANIDE [Concomitant]
     Indication: POLYURIA
     Dosage: 1 MG, QD
     Route: 048
     Dates: end: 20130225
  10. BUMETANIDE [Concomitant]
     Dosage: 1 MG, QD
     Route: 048
     Dates: start: 20130228

REACTIONS (5)
  - Kidney transplant rejection [Recovered/Resolved]
  - Cytomegalovirus infection [Recovered/Resolved]
  - Renal failure [Recovered/Resolved]
  - Escherichia urinary tract infection [Recovered/Resolved]
  - Pneumonia [Recovered/Resolved]
